FAERS Safety Report 19401997 (Version 13)
Quarter: 2022Q1

REPORT INFORMATION
  Report Type: Spontaneous
  Country: KR (occurrence: KR)
  Receive Date: 20210610
  Receipt Date: 20220123
  Transmission Date: 20220423
  Serious: Yes (Death, Hospitalization, Other)
  Sender: FDA-Public Use
  Company Number: KR-ALXN-A202106491

PATIENT
  Age: 74 Year
  Sex: Female
  Weight: 57 kg

DRUGS (2)
  1. SOLIRIS [Suspect]
     Active Substance: ECULIZUMAB
     Indication: Paroxysmal nocturnal haemoglobinuria
     Dosage: 600 MG, QW
     Route: 042
     Dates: start: 20150715, end: 20150805
  2. SOLIRIS [Suspect]
     Active Substance: ECULIZUMAB
     Dosage: 900 MG, Q2W
     Route: 042
     Dates: start: 20150812

REACTIONS (15)
  - Urinary tract infection [Fatal]
  - Musculoskeletal disorder [Not Recovered/Not Resolved]
  - Osteitis [Not Recovered/Not Resolved]
  - Arthritis [Recovered/Resolved]
  - Urinary retention [Unknown]
  - Platelet transfusion [Unknown]
  - Condition aggravated [Not Recovered/Not Resolved]
  - Hip arthroplasty [Recovered/Resolved]
  - Hip surgery [Recovered/Resolved]
  - Blood pressure inadequately controlled [Not Recovered/Not Resolved]
  - Blood pressure decreased [Unknown]
  - Renal impairment [Not Recovered/Not Resolved]
  - Sepsis [Not Recovered/Not Resolved]
  - Pyrexia [Unknown]
  - Haemoglobin decreased [Unknown]

NARRATIVE: CASE EVENT DATE: 20180101
